FAERS Safety Report 6677076-4 (Version None)
Quarter: 2010Q2

REPORT INFORMATION
  Report Type: 
  Country: None (occurrence: None)
  Receive Date: 20100412
  Receipt Date: 20100323
  Transmission Date: 20101027
  Serious: Yes (Death)
  Sender: FDA-Public Use
  Company Number: FR-ASTRAZENECA-2010SE12918

PATIENT
  Age: 19024 Day
  Sex: Male

DRUGS (8)
  1. NEXIUM [Suspect]
     Indication: GASTROOESOPHAGEAL REFLUX DISEASE
     Route: 048
     Dates: start: 20090929, end: 20091019
  2. LOVENOX [Suspect]
     Route: 058
     Dates: start: 20090929, end: 20091019
  3. TRIFLUCAN [Suspect]
     Route: 048
     Dates: start: 20090930, end: 20091021
  4. PERFALGAN [Suspect]
     Indication: PROCEDURAL PAIN
     Route: 048
     Dates: start: 20091003, end: 20091014
  5. ERYTHROMYCIN [Concomitant]
     Route: 048
     Dates: start: 20090930, end: 20091016
  6. LEVOTHYROX [Concomitant]
     Indication: HYPOTHYROIDISM
     Route: 048
     Dates: start: 20090930
  7. CREON [Concomitant]
     Indication: PANCREATIC INSUFFICIENCY
     Route: 048
     Dates: start: 20090930
  8. IXEL [Concomitant]
     Indication: DEPRESSION
     Route: 048
     Dates: start: 20090930, end: 20091021

REACTIONS (1)
  - THROMBOCYTOPENIA [None]
